FAERS Safety Report 4673743-2 (Version None)
Quarter: 2005Q2

REPORT INFORMATION
  Report Type: 
  Country: None (occurrence: None)
  Receive Date: 20050523
  Receipt Date: 20050509
  Transmission Date: 20051028
  Serious: Yes (Hospitalization)
  Sender: FDA-Public Use
  Company Number: 200511640BCC

PATIENT
  Age: 76 Year
  Sex: Male
  Weight: 102.0593 kg

DRUGS (8)
  1. ALEVE COLD AND SINUS [Suspect]
     Indication: NASOPHARYNGITIS
     Dosage: 220/120 MG, IRR; ORAL
     Route: 048
     Dates: start: 20050403, end: 20050410
  2. COUMADIN [Suspect]
     Dosage: NI, IRR, NI (SEE IMAGE)
     Dates: start: 20050216, end: 20020310
  3. COUMADIN [Suspect]
     Dosage: NI, IRR, NI (SEE IMAGE)
     Dates: start: 20050216, end: 20050310
  4. COUMADIN [Suspect]
     Dosage: NI, IRR, NI (SEE IMAGE)
     Dates: start: 20050328, end: 20050415
  5. COUMADIN [Suspect]
     Dosage: NI, IRR, NI (SEE IMAGE)
     Dates: start: 20050328, end: 20050415
  6. DRISTAN [Suspect]
     Dates: start: 20050401
  7. CALCIUM GLUCONATE [Concomitant]
  8. LOPID [Concomitant]

REACTIONS (5)
  - DYSPNOEA [None]
  - FAECES DISCOLOURED [None]
  - GASTROINTESTINAL INFLAMMATION [None]
  - HAEMOGLOBIN DECREASED [None]
  - HIATUS HERNIA [None]
